FAERS Safety Report 6063092-2 (Version None)
Quarter: 2009Q1

REPORT INFORMATION
  Report Type: 
  Country: None (occurrence: None)
  Receive Date: 20090203
  Receipt Date: 20090123
  Transmission Date: 20090719
  Serious: Yes (Other)
  Sender: FDA-Public Use
  Company Number: PHHY2009JP02559

PATIENT
  Sex: Male

DRUGS (4)
  1. TEGRETOL [Suspect]
     Indication: SINUSITIS
     Dosage: 150 MG/DAY
     Route: 048
  2. TEGRETOL [Suspect]
     Indication: ANALGESIA
  3. TAGAMET [Suspect]
     Route: 048
  4. SULFONYLUREA [Concomitant]
     Indication: DIABETES MELLITUS
     Route: 048

REACTIONS (1)
  - ABNORMAL BEHAVIOUR [None]
